FAERS Safety Report 6756028-X (Version None)
Quarter: 2010Q2

REPORT INFORMATION
  Report Type: 
  Country: None (occurrence: None)
  Receive Date: 20100604
  Receipt Date: 20100527
  Transmission Date: 20101027
  Serious: Yes (Hospitalization, Other)
  Sender: FDA-Public Use
  Company Number: US-GENZYME-HECT-1000083

PATIENT
  Age: 61 Year
  Sex: Female

DRUGS (2)
  1. HECTOROL [Suspect]
     Indication: HYPERPARATHYROIDISM SECONDARY
     Dosage: 11 MCG, TIW
     Route: 042
     Dates: start: 20100501
  2. HECTOROL [Suspect]
     Dosage: 10 MCG, TIW
     Route: 042
     Dates: end: 20100501

REACTIONS (2)
  - LOSS OF CONSCIOUSNESS [None]
  - MEDICAL DEVICE COMPLICATION [None]
